FAERS Safety Report 11557766 (Version 2)
Quarter: 2015Q4

REPORT INFORMATION
  Report Type: Report from Study
  Country: US (occurrence: US)
  Receive Date: 20150927
  Receipt Date: 20151005
  Transmission Date: 20160304
  Serious: Yes (Death, Hospitalization, Other)
  Sender: FDA-Public Use
  Company Number: US-AMGEN-USASP2015098372

PATIENT
  Age: 87 Year
  Sex: Female
  Weight: 114 kg

DRUGS (1)
  1. PROLIA [Suspect]
     Active Substance: DENOSUMAB
     Indication: PRODUCT USED FOR UNKNOWN INDICATION
     Dosage: UNK
     Route: 065

REACTIONS (4)
  - Living in residential institution [Unknown]
  - Acute myocardial infarction [Fatal]
  - Pneumonia bacterial [Fatal]
  - Pleural effusion [Fatal]

NARRATIVE: CASE EVENT DATE: 201508
